FAERS Safety Report 8048391-7 (Version None)
Quarter: 2012Q1

REPORT INFORMATION
  Report Type: 
  Country: None (occurrence: None)
  Receive Date: 20120117
  Receipt Date: 20120109
  Transmission Date: 20120608
  Serious: No
  Sender: FDA-Public Use
  Company Number: US-PFIZER INC-2011250442

PATIENT

DRUGS (2)
  1. ZYVOX [Suspect]
     Dosage: UNK
  2. TPN [Interacting]
     Dosage: UNK

REACTIONS (1)
  - DRUG INTERACTION [None]
